FAERS Safety Report 22140779 (Version 2)
Quarter: 2023Q2

REPORT INFORMATION
  Report Type: Spontaneous
  Country: CA (occurrence: CA)
  Receive Date: 20230327
  Receipt Date: 20230404
  Transmission Date: 20230722
  Serious: Yes (Other)
  Sender: FDA-Public Use
  Company Number: CA-PFIZER INC-202300127029

PATIENT
  Age: 87 Year
  Sex: Male

DRUGS (14)
  1. VYNDAMAX [Suspect]
     Active Substance: TAFAMIDIS
     Indication: Cardiac amyloidosis
     Dosage: 61 MG, DAILY
     Route: 048
     Dates: start: 20221027
  2. APIXABAN [Concomitant]
     Active Substance: APIXABAN
  3. BISOPROLOL [Concomitant]
     Active Substance: BISOPROLOL
  4. CALTRATE 600 +D PLUS [Concomitant]
  5. DAPAGLIFLOZIN [Concomitant]
     Active Substance: DAPAGLIFLOZIN
  6. LASIX [Concomitant]
     Active Substance: FUROSEMIDE
  7. GLUCOPHAGE [Concomitant]
     Active Substance: METFORMIN HYDROCHLORIDE
  8. VITAMINS [Concomitant]
     Active Substance: VITAMINS
     Route: 048
  9. NIFEDIPINE [Concomitant]
     Active Substance: NIFEDIPINE
  10. PERINDOPRIL ARGININE [Concomitant]
     Active Substance: PERINDOPRIL ARGININE
  11. MICRO-K [Concomitant]
     Active Substance: POTASSIUM CHLORIDE
  12. CRESTOR [Concomitant]
     Active Substance: ROSUVASTATIN CALCIUM
  13. ALDACTONE [Concomitant]
     Active Substance: SPIRONOLACTONE
  14. TOBREX [Concomitant]
     Active Substance: TOBRAMYCIN

REACTIONS (2)
  - Hepatosplenomegaly [Unknown]
  - Heart rate irregular [Unknown]
